FAERS Safety Report 7955480-1 (Version None)
Quarter: 2011Q4

REPORT INFORMATION
  Report Type: 
  Country: None (occurrence: None)
  Receive Date: 20111202
  Receipt Date: 20111110
  Transmission Date: 20120403
  Serious: Yes (Hospitalization)
  Sender: FDA-Public Use
  Company Number: KR-US-EMD SERONO, INC.-7089888

PATIENT
  Sex: Female

DRUGS (4)
  1. OVIDREL [Suspect]
     Indication: PRODUCT USED FOR UNKNOWN INDICATION
     Route: 058
     Dates: start: 20100727, end: 20100727
  2. LUVERIS [Suspect]
     Indication: PRODUCT USED FOR UNKNOWN INDICATION
     Route: 058
     Dates: start: 20100726
  3. GONAL-F [Suspect]
     Indication: OVARIAN HYPERSTIMULATION SYNDROME
     Route: 058
     Dates: start: 20100719, end: 20100726
  4. BUCERELIN (BUSERELIN) [Concomitant]
     Indication: HORMONE THERAPY
     Route: 058
     Dates: start: 20100630, end: 20100727

REACTIONS (1)
  - ECTOPIC PREGNANCY [None]
